FAERS Safety Report 8391053-7 (Version None)
Quarter: 2012Q2

REPORT INFORMATION
  Report Type: 
  Country: None (occurrence: None)
  Receive Date: 20120529
  Receipt Date: 20120517
  Transmission Date: 20120825
  Serious: Yes (Other)
  Sender: FDA-Public Use
  Company Number: JP-CELGENEUS-087-50794-12022068

PATIENT
  Sex: Male
  Weight: 60 kg

DRUGS (9)
  1. VIDAZA [Suspect]
     Dosage: 130 MILLIGRAM
     Route: 041
     Dates: start: 20120227, end: 20120229
  2. ANTIHISTAMINE [Concomitant]
     Route: 065
     Dates: start: 20120228
  3. GARENOXACIN MESYLATE [Concomitant]
     Route: 065
     Dates: start: 20120210, end: 20120213
  4. ALLOPURINOL [Concomitant]
     Route: 065
  5. PREDNISOLONE [Concomitant]
     Route: 065
  6. GRANISETRON [Concomitant]
     Route: 065
     Dates: start: 20120213, end: 20120213
  7. LANSOPRAZOLE [Concomitant]
     Route: 065
  8. VIDAZA [Suspect]
     Dosage: 130 MILLIGRAM
     Route: 041
     Dates: start: 20120213, end: 20120213
  9. STEROID [Concomitant]
     Route: 065
     Dates: start: 20120228

REACTIONS (2)
  - PYREXIA [None]
  - CEREBRAL INFARCTION [None]
